FAERS Safety Report 21734536 (Version 2)
Quarter: 2025Q1

REPORT INFORMATION
  Report Type: Spontaneous
  Country: US (occurrence: US)
  Receive Date: 20221215
  Receipt Date: 20250103
  Transmission Date: 20250408
  Serious: No
  Sender: PFIZER
  Company Number: US-PFIZER INC-PV202200123937

PATIENT
  Age: 72 Year
  Sex: Female

DRUGS (4)
  1. XELJANZ [Suspect]
     Active Substance: TOFACITINIB CITRATE
     Indication: Rheumatoid arthritis
     Dosage: 10 MG, DAILY (2 TABLETS ORALLY)
     Route: 048
  2. XELJANZ [Suspect]
     Active Substance: TOFACITINIB CITRATE
     Indication: Osteoarthritis
     Dosage: 5 MG, DAILY
     Route: 048
  3. XELJANZ [Suspect]
     Active Substance: TOFACITINIB CITRATE
     Indication: Fibromyalgia
  4. XELJANZ [Suspect]
     Active Substance: TOFACITINIB CITRATE
     Indication: Diffuse idiopathic skeletal hyperostosis

REACTIONS (2)
  - Metabolic dysfunction-associated liver disease [Unknown]
  - Hepatic enzyme abnormal [Unknown]
